FAERS Safety Report 6322903-3 (Version None)
Quarter: 2009Q3

REPORT INFORMATION
  Report Type: 
  Country: None (occurrence: None)
  Receive Date: 20090824
  Receipt Date: 20090305
  Transmission Date: 20100115
  Serious: No
  Sender: FDA-Public Use
  Company Number: US-ABBOTT-09P-163-0560835-00

PATIENT
  Sex: Male

DRUGS (5)
  1. NIASPAN [Suspect]
     Indication: BLOOD TRIGLYCERIDES INCREASED
     Dosage: EVERY NIGHT
     Dates: start: 20090101
  2. NIASPAN [Suspect]
     Dosage: EVERY NIGHT
     Dates: start: 20090201
  3. NIASPAN [Suspect]
     Dosage: EVERY NIGHT
     Dates: start: 20090301
  4. ASPIRIN [Concomitant]
     Indication: DRUG USE FOR UNKNOWN INDICATION
     Route: 048
  5. ONE A DAY VITAMINS [Concomitant]
     Indication: DRUG USE FOR UNKNOWN INDICATION
     Route: 048

REACTIONS (5)
  - ARTHRALGIA [None]
  - FATIGUE [None]
  - FEELING HOT [None]
  - FLUSHING [None]
  - PRURITUS [None]
